FAERS Safety Report 16741789 (Version 1)
Quarter: 2019Q3

REPORT INFORMATION
  Report Type: Spontaneous
  Country: DE (occurrence: DE)
  Receive Date: 20190826
  Receipt Date: 20190826
  Transmission Date: 20191005
  Serious: Yes (Hospitalization, Other)
  Sender: FDA-Public Use
  Company Number: PHHY2019DE193864

PATIENT
  Age: 36 Year
  Sex: Female
  Weight: 89 kg

DRUGS (4)
  1. AMOXICILLIN. [Suspect]
     Active Substance: AMOXICILLIN
     Indication: PRODUCT USED FOR UNKNOWN INDICATION
     Route: 048
  2. IBUPROFEN. [Concomitant]
     Active Substance: IBUPROFEN
     Indication: PRODUCT USED FOR UNKNOWN INDICATION
     Route: 065
  3. PARACETAMOL [Concomitant]
     Active Substance: ACETAMINOPHEN
     Indication: PRODUCT USED FOR UNKNOWN INDICATION
     Route: 065
  4. STROVAC [Suspect]
     Active Substance: ESCHERICHIA COLI\ENTEROCOCCUS FAECALIS\KLEBSIELLA PNEUMONIAE\PROTEUS MIRABILIS\PROTEUS MORGANII
     Indication: URINARY TRACT INFECTION
     Dosage: 0.5 ML, UNK
     Route: 030

REACTIONS (7)
  - Procalcitonin increased [Recovered/Resolved]
  - Transaminases increased [Recovering/Resolving]
  - C-reactive protein increased [Recovered/Resolved]
  - Malaise [Recovering/Resolving]
  - Pyrexia [Recovered/Resolved]
  - White blood cell count increased [Recovered/Resolved]
  - Somnolence [Not Recovered/Not Resolved]

NARRATIVE: CASE EVENT DATE: 20190801
